FAERS Safety Report 4459436-5 (Version None)
Quarter: 2004Q3

REPORT INFORMATION
  Report Type: 
  Country: None (occurrence: None)
  Receive Date: 20040927
  Receipt Date: 20040916
  Transmission Date: 20050211
  Serious: Yes (Hospitalization)
  Sender: FDA-Public Use
  Company Number: GB-GLAXOSMITHKLINE-B0345641A

PATIENT
  Sex: Female

DRUGS (2)
  1. ZYBAN [Suspect]
     Dosage: 1TAB PER DAY
     Route: 048
     Dates: start: 20040101, end: 20040101
  2. NO CONCURRENT MEDICATION [Concomitant]

REACTIONS (3)
  - DRY MOUTH [None]
  - FACIAL SPASM [None]
  - RASH GENERALISED [None]
